FAERS Safety Report 14172474 (Version 1)
Quarter: 2017Q4

REPORT INFORMATION
  Report Type: Spontaneous
  Country: US (occurrence: US)
  Receive Date: 20171108
  Receipt Date: 20171108
  Transmission Date: 20180321
  Serious: No
  Sender: FDA-Public Use
  Company Number: None

PATIENT

DRUGS (1)
  1. ALBUMIN 5% [Suspect]
     Active Substance: ALBUMIN HUMAN
     Indication: FLUID REPLACEMENT

REACTIONS (1)
  - Product contamination physical [None]

NARRATIVE: CASE EVENT DATE: 20171107
